FAERS Safety Report 5042520-5 (Version None)
Quarter: 2006Q2

REPORT INFORMATION
  Report Type: 
  Country: None (occurrence: None)
  Receive Date: 20060627
  Receipt Date: 20060614
  Transmission Date: 20061013
  Serious: Yes (Other)
  Sender: FDA-Public Use
  Company Number: DE-2006-005164

PATIENT
  Age: 32 Year
  Sex: Female

DRUGS (1)
  1. MIRENA [Suspect]
     Dosage: 20 UG/DAY, CONT, INTRA-UTERINE
     Route: 015
     Dates: start: 20050801

REACTIONS (4)
  - AMENORRHOEA [None]
  - GENITAL HAEMORRHAGE [None]
  - IUCD COMPLICATION [None]
  - PULMONARY EMBOLISM [None]
